FAERS Safety Report 9549388 (Version 2)
Quarter: 2013Q4

REPORT INFORMATION
  Report Type: Spontaneous
  Country: ES (occurrence: ES)
  Receive Date: 20130924
  Receipt Date: 20131203
  Transmission Date: 20140711
  Serious: Yes (Other)
  Sender: FDA-Public Use
  Company Number: ES-ABBVIE-13P-144-1150376-00

PATIENT
  Age: 55 Year
  Sex: Male

DRUGS (4)
  1. HUMIRA [Suspect]
     Indication: RHEUMATOID ARTHRITIS
     Route: 058
     Dates: start: 201306, end: 201309
  2. NSAID^S [Suspect]
     Indication: PRODUCT USED FOR UNKNOWN INDICATION
  3. INSULINE [Concomitant]
     Indication: DIABETES MELLITUS
  4. IRBESARTAN [Concomitant]
     Indication: HYPERTENSION

REACTIONS (3)
  - Renal failure [Unknown]
  - Renal tubular necrosis [Unknown]
  - Tubulointerstitial nephritis [Unknown]
